FAERS Safety Report 10907739 (Version 1)
Quarter: 2015Q1

REPORT INFORMATION
  Report Type: Spontaneous
  Country: US (occurrence: US)
  Receive Date: 20150312
  Receipt Date: 20150312
  Transmission Date: 20150721
  Serious: No
  Sender: FDA-Public Use
  Company Number: US-INCYTE CORPORATION-2015IN000207

PATIENT
  Sex: Male
  Weight: 81.63 kg

DRUGS (8)
  1. MELATONIN [Concomitant]
     Active Substance: MELATONIN
     Dosage: 10 MG
  2. CARVEDILOL. [Concomitant]
     Active Substance: CARVEDILOL
     Dosage: 12.5 MG
     Route: 048
  3. ARGININE [Concomitant]
     Active Substance: ARGININE
     Dosage: 1000 MG
     Route: 048
  4. JAKAFI [Suspect]
     Active Substance: RUXOLITINIB
     Indication: MYELOFIBROSIS
     Dosage: 10 MG, BID
     Route: 048
     Dates: start: 20141020
  5. ASPIRIN. [Concomitant]
     Active Substance: ASPIRIN
     Dosage: 81 MG
     Route: 048
  6. PROBIOTICS NOS [Concomitant]
     Active Substance: PROBIOTICS NOS
     Route: 048
  7. FISH OIL [Concomitant]
     Active Substance: FISH OIL
     Dosage: 120 MG - 180 MG
  8. LUTEIN ZEAXANTHIN [Concomitant]
     Dosage: 25 MG

REACTIONS (1)
  - Rosacea [Unknown]
